FAERS Safety Report 5281299-9 (Version None)
Quarter: 2007Q1

REPORT INFORMATION
  Report Type: 
  Country: None (occurrence: None)
  Receive Date: 20061221
  Receipt Date: 20061107
  Transmission Date: 20070707
  Serious: Yes (Disabling)
  Sender: FDA-Public Use
  Company Number: SP01021

PATIENT
  Age: 19 Year
  Sex: Female
  Weight: 41.7309 kg

DRUGS (12)
  1. XIFAXAN [Suspect]
     Indication: GASTROINTESTINAL INFECTION
     Dosage: 400 (200 MG, Q12H) ORAL
     Route: 048
     Dates: start: 20061024, end: 20061108
  2. XIFAXAN [Suspect]
     Indication: OVERGROWTH BACTERIAL
     Dosage: 400 (200 MG, Q12H) ORAL
     Route: 048
     Dates: start: 20061024, end: 20061108
  3. HAPARIN LOCK FLUSH [Concomitant]
  4. NEXIUM (40 MILLIGRAM, INJECTION) [Concomitant]
  5. BENADRYL (INJECTION FOR INFUSION) [Concomitant]
  6. LEXAPRO (20 MILLIGRAM) [Concomitant]
  7. FERROUS GLUCONATE [Concomitant]
  8. PHILLIPS GEL CAP [Concomitant]
  9. FENTANYL [Concomitant]
  10. ACTIQ [Concomitant]
  11. ALAMAX [Concomitant]
  12. ZOFRAN (4 MILLIGRAM, INJECTION) [Concomitant]

REACTIONS (1)
  - VERTIGO [None]
